FAERS Safety Report 5053433-7 (Version None)
Quarter: 2006Q2

REPORT INFORMATION
  Report Type: 
  Country: None (occurrence: None)
  Receive Date: 20060614
  Receipt Date: 20060417
  Transmission Date: 20061013
  Serious: No
  Sender: FDA-Public Use
  Company Number: 444922

PATIENT
  Age: 75 Year
  Sex: Female
  Weight: 68 kg

DRUGS (3)
  1. BONIVA [Suspect]
     Indication: OSTEOPOROSIS
     Dosage: 150 MG 1 PER MONTH ORAL
     Route: 048
     Dates: start: 20060115, end: 20060312
  2. CALCIUM (CALCIUM) [Concomitant]
  3. MULTIVITAMIN NOS (MULTIVITAMIN NOS) [Concomitant]

REACTIONS (1)
  - TOOTH ABSCESS [None]
